FAERS Safety Report 6184991-7 (Version None)
Quarter: 2009Q2

REPORT INFORMATION
  Report Type: 
  Country: None (occurrence: None)
  Receive Date: 20090511
  Receipt Date: 20090311
  Transmission Date: 20091009
  Serious: No
  Sender: FDA-Public Use
  Company Number: A0772802A

PATIENT
  Age: 66 Year
  Sex: Female

DRUGS (3)
  1. COREG CR [Suspect]
     Indication: HYPERTENSION
     Dosage: 20MG PER DAY
     Route: 048
     Dates: start: 20090302
  2. OMEPRAZOLE [Concomitant]
  3. TYLENOL [Concomitant]

REACTIONS (2)
  - GASTROINTESTINAL PAIN [None]
  - ULCER [None]
